FAERS Safety Report 8894166 (Version 1)
Quarter: 2012Q4

REPORT INFORMATION
  Report Type: 
  Country: US (occurrence: US)
  Receive Date: 20121107
  Receipt Date: 20121107
  Transmission Date: 20130627
  Serious: No
  Sender: FDA-Public Use
  Company Number: US-AMGEN-USASP2011049817

PATIENT
  Age: 3 Year
  Sex: Female

DRUGS (2)
  1. ENBREL [Suspect]
     Indication: JUVENILE ARTHRITIS
     Dosage: 25 mg, qwk
     Dates: start: 20110901
  2. METHOTREXATE [Concomitant]
     Dosage: 1 mg, qwk
     Dates: start: 201108

REACTIONS (4)
  - Contusion [Not Recovered/Not Resolved]
  - Injection site induration [Not Recovered/Not Resolved]
  - Injection site nodule [Not Recovered/Not Resolved]
  - Injection site bruising [Not Recovered/Not Resolved]
